FAERS Safety Report 19008376 (Version 1)
Quarter: 2021Q1

REPORT INFORMATION
  Report Type: Spontaneous
  Country: NL (occurrence: NL)
  Receive Date: 20210316
  Receipt Date: 20210316
  Transmission Date: 20210420
  Serious: Yes (Disabling)
  Sender: FDA-Public Use
  Company Number: NL-AUROBINDO-AUR-APL-2021-008844

PATIENT
  Sex: Male
  Weight: 112 kg

DRUGS (2)
  1. LEVOFLOXACIN FILM?COATED TABLETS 500MG [Suspect]
     Active Substance: LEVOFLOXACIN
     Indication: EPIDIDYMITIS
     Dosage: 500 MILLIGRAM, TWO TIMES A DAY (2 PER DAY)
     Route: 065
     Dates: start: 201802
  2. OFLOXACIN. [Suspect]
     Active Substance: OFLOXACIN
     Indication: EPIDIDYMITIS
     Dosage: 400 MILLIGRAM, TWO TIMES A DAY (2 PER DAY)
     Route: 065
     Dates: start: 201809

REACTIONS (7)
  - Tendon pain [Recovering/Resolving]
  - Arthralgia [Recovering/Resolving]
  - Myalgia [Recovering/Resolving]
  - Panic reaction [Not Recovered/Not Resolved]
  - Malaise [Unknown]
  - Gastritis [Recovered/Resolved]
  - Anxiety [Not Recovered/Not Resolved]
